FAERS Safety Report 6613372-4 (Version None)
Quarter: 2010Q1

REPORT INFORMATION
  Report Type: 
  Country: None (occurrence: None)
  Receive Date: 20100304
  Receipt Date: 20100302
  Transmission Date: 20100710
  Serious: Yes (Other)
  Sender: FDA-Public Use
  Company Number: US-ROXANE LABORATORIES, INC.-2010-RO-00220RO

PATIENT
  Age: 57 Year
  Sex: Male

DRUGS (10)
  1. PREDNISONE [Suspect]
     Indication: GOUT
     Dosage: 20 MG
  2. LIDOCAINE [Suspect]
     Indication: VASOCONSTRICTION
  3. LIDOCAINE [Suspect]
     Indication: ANAESTHESIA
  4. MIDODRINE HYDROCHLORIDE [Suspect]
     Indication: ORTHOSTATIC HYPOTENSION
     Dosage: 30 MG
     Route: 048
  5. EPINEPHRINE [Suspect]
     Indication: VASOCONSTRICTION
  6. EPINEPHRINE [Suspect]
     Indication: ANAESTHESIA
  7. ESMOLOL HCL [Concomitant]
     Indication: HYPERTENSION
  8. ESMOLOL HCL [Concomitant]
     Indication: HEART RATE INCREASED
  9. NITROGLYCERIN [Concomitant]
     Indication: HYPERTENSION
  10. NITROGLYCERIN [Concomitant]
     Indication: HEART RATE INCREASED

REACTIONS (2)
  - HEART RATE INCREASED [None]
  - PROCEDURAL HYPERTENSION [None]
